FAERS Safety Report 7592377-3 (Version None)
Quarter: 2011Q3

REPORT INFORMATION
  Report Type: 
  Country: None (occurrence: None)
  Receive Date: 20110705
  Receipt Date: 20110705
  Transmission Date: 20111222
  Serious: No
  Sender: FDA-Public Use
  Company Number: None

PATIENT
  Sex: Female

DRUGS (2)
  1. ZYMAR [Suspect]
     Indication: ULCERATIVE KERATITIS
     Dosage: 1 GTT OD QID EYE DROP
     Route: 031
     Dates: start: 20040618, end: 20040624
  2. OCUFLOX [Suspect]
     Indication: ULCERATIVE KERATITIS
     Dosage: 1 GTT OD Q2H THEN BID EYEDROP
     Route: 031
     Dates: start: 20020817, end: 20020911

REACTIONS (1)
  - NO THERAPEUTIC RESPONSE [None]
